FAERS Safety Report 9500978 (Version 2)
Quarter: 2014Q1

REPORT INFORMATION
  Report Type: Spontaneous
  Country: GB (occurrence: GB)
  Receive Date: 20130905
  Receipt Date: 20140128
  Transmission Date: 20141002
  Serious: Yes (Life-Threatening)
  Sender: FDA-Public Use
  Company Number: PHHY2013GB095913

PATIENT
  Age: 17 Year
  Sex: Male

DRUGS (4)
  1. RISPERIDONE [Suspect]
     Indication: HYPOMANIA
     Dosage: 0.5 MG, AT NIGHT
     Route: 048
     Dates: start: 20130307
  2. RISPERIDONE [Suspect]
     Dosage: 3 MG, UNK
     Dates: end: 20130802
  3. FLUOXETINE [Concomitant]
     Dosage: 20 MG QD (MORNING)
     Route: 048
     Dates: end: 20130802
  4. OMEPRAZOLE [Concomitant]
     Dosage: 20 MG QD (MORNING)
     Route: 048

REACTIONS (4)
  - Cardiomyopathy [Not Recovered/Not Resolved]
  - Aortic dilatation [Unknown]
  - Left ventricular hypertrophy [Unknown]
  - Cardiomegaly [Unknown]
